FAERS Safety Report 5759001-3 (Version None)
Quarter: 2008Q2

REPORT INFORMATION
  Report Type: 
  Country: None (occurrence: None)
  Receive Date: 20080604
  Receipt Date: 20080523
  Transmission Date: 20081010
  Serious: Yes (Other)
  Sender: FDA-Public Use
  Company Number: ES-PFIZER INC-2008012550

PATIENT
  Sex: Female
  Weight: 58 kg

DRUGS (1)
  1. TRANKIMAZIN [Suspect]
     Indication: DYSTONIA
     Route: 048

REACTIONS (6)
  - BLOOD PRESSURE DIASTOLIC INCREASED [None]
  - DISORIENTATION [None]
  - DIZZINESS [None]
  - DRUG WITHDRAWAL SYNDROME [None]
  - HEADACHE [None]
  - TACHYCARDIA [None]
